FAERS Safety Report 22149296 (Version 1)
Quarter: 2023Q1

REPORT INFORMATION
  Report Type: Spontaneous
  Country: IN (occurrence: IN)
  Receive Date: 20230329
  Receipt Date: 20230329
  Transmission Date: 20230417
  Serious: Yes (Other)
  Sender: FDA-Public Use
  Company Number: IN-002147023-NVSC2023IN069949

PATIENT
  Age: 24 Year
  Sex: Female
  Weight: 42 kg

DRUGS (2)
  1. VOTRIENT [Suspect]
     Active Substance: PAZOPANIB HYDROCHLORIDE
     Indication: Leiomyoma
     Dosage: 800 MG, QD
     Route: 065
     Dates: start: 20221013
  2. VOTRIENT [Suspect]
     Active Substance: PAZOPANIB HYDROCHLORIDE
     Indication: Desmoid tumour

REACTIONS (3)
  - Hypothyroidism [Recovering/Resolving]
  - Diarrhoea [Recovering/Resolving]
  - Product use in unapproved indication [Unknown]

NARRATIVE: CASE EVENT DATE: 20221013
